FAERS Safety Report 25491788 (Version 2)
Quarter: 2025Q3

REPORT INFORMATION
  Report Type: Spontaneous
  Country: US (occurrence: US)
  Receive Date: 20250630
  Receipt Date: 20250803
  Transmission Date: 20251020
  Serious: No
  Sender: TAKEDA
  Company Number: US-TAKEDA-2025TUS057199

PATIENT
  Age: 22 Year
  Sex: Male
  Weight: 79 kg

DRUGS (3)
  1. ENTYVIO [Suspect]
     Active Substance: VEDOLIZUMAB
     Indication: Crohn^s disease
  2. ENTYVIO [Suspect]
     Active Substance: VEDOLIZUMAB
     Indication: Crohn^s disease
     Dosage: 108 MILLIGRAM, Q2WEEKS
     Dates: start: 202501
  3. ENTYVIO [Suspect]
     Active Substance: VEDOLIZUMAB

REACTIONS (4)
  - No adverse event [Unknown]
  - Device defective [Unknown]
  - Device leakage [Unknown]
  - Incorrect dose administered by device [Unknown]

NARRATIVE: CASE EVENT DATE: 20250618
